FAERS Safety Report 5543342-9 (Version None)
Quarter: 2007Q4

REPORT INFORMATION
  Report Type: 
  Country: None (occurrence: None)
  Receive Date: 20071206
  Receipt Date: 20071127
  Transmission Date: 20080405
  Serious: Yes (Hospitalization)
  Sender: FDA-Public Use
  Company Number: 2007-05327

PATIENT
  Age: 73 Year
  Sex: Female

DRUGS (6)
  1. CARTIA XT [Suspect]
     Indication: HEART RATE IRREGULAR
     Dosage: 1 TABLET, DAILY, ORAL
     Route: 048
     Dates: start: 20051101
  2. CARTIA XT [Suspect]
     Indication: HYPERTENSION
     Dosage: 1 TABLET, DAILY, ORAL
     Route: 048
     Dates: start: 20051101
  3. NTG (GLYCERYL TRINITRATE) [Concomitant]
  4. SPIRIVA [Concomitant]
  5. ADVAIR (SALMETEROL XINAFOATE, FLUTICASONE PROPIONATE) [Concomitant]
  6. ASPIRIN [Concomitant]

REACTIONS (7)
  - ADRENAL MASS [None]
  - CATHETERISATION CARDIAC [None]
  - COLITIS ISCHAEMIC [None]
  - GASTROINTESTINAL DISORDER [None]
  - HOT FLUSH [None]
  - HYPERHIDROSIS [None]
  - POSTOPERATIVE THROMBOSIS [None]
